FAERS Safety Report 12251383 (Version 4)
Quarter: 2017Q2

REPORT INFORMATION
  Report Type: Spontaneous
  Country: US (occurrence: US)
  Receive Date: 20160410
  Receipt Date: 20170607
  Transmission Date: 20170830
  Serious: Yes (Other)
  Sender: FDA-Public Use
  Company Number: US-JNJFOC-20160320239

PATIENT
  Age: 42 Year
  Sex: Male

DRUGS (3)
  1. RISPERDAL [Suspect]
     Active Substance: RISPERIDONE
     Indication: DEPRESSION
     Route: 048
     Dates: end: 2007
  2. RISPERDAL [Suspect]
     Active Substance: RISPERIDONE
     Indication: DEPRESSION
     Dosage: IN VARYING DOSES OF 2 MG AND 2.5 MG
     Route: 048
     Dates: start: 2004
  3. RISPERDAL [Suspect]
     Active Substance: RISPERIDONE
     Indication: DEPRESSION
     Dosage: VARYING DOSES OF 1, 2 , 3  AND 2.5 MG
     Route: 048
     Dates: start: 20040423

REACTIONS (6)
  - Gynaecomastia [Unknown]
  - Galactorrhoea [Unknown]
  - Abnormal weight gain [Unknown]
  - Product use in unapproved indication [Unknown]
  - Sedation [Unknown]
  - Off label use [Unknown]

NARRATIVE: CASE EVENT DATE: 2004
